FAERS Safety Report 5895292-6 (Version None)
Quarter: 2008Q2

REPORT INFORMATION
  Report Type: 
  Country: None (occurrence: None)
  Receive Date: 20080625
  Receipt Date: 20080625
  Transmission Date: 20081010
  Serious: No
  Sender: FDA-Public Use
  Company Number: None

PATIENT
  Age: 50 Year
  Sex: Male

DRUGS (1)
  1. THALLIUM RADIOPHARMACEUTICA COVIDEN/CARDINAL HEALTH [Suspect]
     Indication: CHEST PAIN
     Dosage: ONCE IV ONE TIME ADMINISTRATION
     Route: 042
     Dates: start: 20080624, end: 20080624

REACTIONS (2)
  - PHARMACEUTICAL PRODUCT COMPLAINT [None]
  - THERAPEUTIC PRODUCT CONTAMINATION [None]
